FAERS Safety Report 5101370-1 (Version None)
Quarter: 2006Q3

REPORT INFORMATION
  Report Type: 
  Country: None (occurrence: None)
  Receive Date: 20060911
  Receipt Date: 20060905
  Transmission Date: 20061208
  Serious: Yes (Other)
  Sender: FDA-Public Use
  Company Number: US-ROCHE-462265

PATIENT
  Sex: Female

DRUGS (1)
  1. VALIUM [Suspect]
     Indication: OBSESSIVE-COMPULSIVE DISORDER
     Route: 065
     Dates: start: 19890615

REACTIONS (7)
  - ABSCESS ORAL [None]
  - AGORAPHOBIA [None]
  - CANDIDIASIS [None]
  - CEREBROVASCULAR ACCIDENT [None]
  - FEELING ABNORMAL [None]
  - ILL-DEFINED DISORDER [None]
  - PRURITUS [None]
